FAERS Safety Report 5322056-4 (Version None)
Quarter: 2007Q2

REPORT INFORMATION
  Report Type: 
  Country: None (occurrence: None)
  Receive Date: 20070511
  Receipt Date: 20070501
  Transmission Date: 20071010
  Serious: Yes (Death)
  Sender: FDA-Public Use
  Company Number: US-JNJFOC-20060902698

PATIENT
  Age: 63 Year
  Sex: Female

DRUGS (13)
  1. DIPHENHYDRAMINE HCL [Suspect]
     Indication: SUICIDE ATTEMPT
     Route: 048
  2. PHENOBARBITAL TAB [Suspect]
     Indication: SUICIDE ATTEMPT
     Route: 048
  3. CARBON MONOXIDE [Suspect]
     Indication: SUICIDE ATTEMPT
     Route: 055
  4. DIAZEPAM [Suspect]
     Indication: SUICIDE ATTEMPT
  5. CARBAMAZEPINE [Suspect]
     Indication: SUICIDE ATTEMPT
  6. LIPITOR [Suspect]
     Indication: SUICIDE ATTEMPT
  7. NITROGLYCERIN [Suspect]
     Indication: SUICIDE ATTEMPT
  8. ALBUTEROL [Suspect]
     Indication: SUICIDE ATTEMPT
  9. NASONEX [Suspect]
     Indication: SUICIDE ATTEMPT
  10. LEVOXYL [Suspect]
     Indication: SUICIDE ATTEMPT
  11. ENALAPRIL [Suspect]
     Indication: SUICIDE ATTEMPT
  12. PREVACID [Suspect]
     Indication: SUICIDE ATTEMPT
  13. UNSPECIFIED VITAMINS [Suspect]
     Indication: SUICIDE ATTEMPT

REACTIONS (2)
  - COMPLETED SUICIDE [None]
  - DRUG TOXICITY [None]
